FAERS Safety Report 5236380-7 (Version None)
Quarter: 2007Q1

REPORT INFORMATION
  Report Type: 
  Country: None (occurrence: None)
  Receive Date: 20061208
  Receipt Date: 20060322
  Transmission Date: 20070707
  Serious: Yes (Other)
  Sender: FDA-Public Use
  Company Number: 2006UW00370

PATIENT
  Age: 73 Year
  Sex: Female
  Weight: 76.2043 kg

DRUGS (9)
  1. CRESTOR [Suspect]
     Indication: BLOOD CHOLESTEROL INCREASED
     Dosage: 10 MG PO
     Route: 048
     Dates: start: 20030903, end: 20060101
  2. CRESTOR [Suspect]
     Indication: BLOOD CHOLESTEROL INCREASED
     Dosage: 5 MG PO
     Route: 048
     Dates: start: 20060102, end: 20060109
  3. ASPIRIN [Concomitant]
  4. FOLIC ACID [Concomitant]
  5. GLYNASE [Concomitant]
  6. AVANDIA [Concomitant]
  7. LANTUS [Concomitant]
  8. NEURONTIN [Concomitant]
  9. DIPYRIDAMOLE [Concomitant]

REACTIONS (9)
  - ABDOMINAL PAIN UPPER [None]
  - ABDOMINAL SYMPTOM [None]
  - ASTHENIA [None]
  - CHEST PAIN [None]
  - CHILLS [None]
  - DIZZINESS [None]
  - EYE IRRITATION [None]
  - FEELING ABNORMAL [None]
  - PAIN [None]
